FAERS Safety Report 7420964-1 (Version None)
Quarter: 2011Q2

REPORT INFORMATION
  Report Type: 
  Country: None (occurrence: None)
  Receive Date: 20110418
  Receipt Date: 20110408
  Transmission Date: 20111010
  Serious: Yes (Other)
  Sender: FDA-Public Use
  Company Number: CN-ROCHE-770876

PATIENT
  Age: 32 Year
  Sex: Male

DRUGS (4)
  1. SUNITINIB [Suspect]
     Indication: METASTATIC RENAL CELL CARCINOMA
     Dosage: GIVEN 4 WEEKS + 2-WEEK INTERMITTENCE IN EACH COURSE. TOTAL DURATION 1.5 M, DISCONTINUED FOR 5 DAYS.
     Route: 065
     Dates: start: 20080618
  2. DIPHOSPHONATE [Concomitant]
  3. BEVACIZUMAB [Suspect]
     Indication: METASTATIC RENAL CELL CARCINOMA
     Dosage: GIVEN FOR 3 WEEKS.
     Route: 065
     Dates: start: 20080618
  4. BEVACIZUMAB [Suspect]
     Dosage: AFTER WEEK 3 OF COMMENCEMENT OF BEVACIZUMAB.
     Route: 065

REACTIONS (4)
  - BONE MARROW FAILURE [None]
  - PALMAR-PLANTAR ERYTHRODYSAESTHESIA SYNDROME [None]
  - ABDOMINAL PAIN [None]
  - DIARRHOEA [None]
